APPROVED DRUG PRODUCT: CETIRIZINE HYDROCHLORIDE
Active Ingredient: CETIRIZINE HYDROCHLORIDE
Strength: 5MG/5ML
Dosage Form/Route: SOLUTION;ORAL
Application: A077472 | Product #001
Applicant: RANBAXY LABORATORIES LTD
Approved: Jun 18, 2008 | RLD: No | RS: No | Type: DISCN